FAERS Safety Report 10075460 (Version 2)
Quarter: 2014Q2

REPORT INFORMATION
  Report Type: Spontaneous
  Country: IT (occurrence: IT)
  Receive Date: 20140414
  Receipt Date: 20140527
  Transmission Date: 20141212
  Serious: Yes (Hospitalization)
  Sender: FDA-Public Use
  Company Number: IT-ACCORD-023004

PATIENT
  Age: 67 Year
  Sex: Male
  Weight: 63 kg

DRUGS (6)
  1. CARDIOASPIRIN [Concomitant]
     Dosage: CARDIOASPIRIN ^100MG GASTRORESISTANT TABLETS^ 30 TABLETS
     Route: 048
     Dates: start: 20130101, end: 20140307
  2. LEGALON [Concomitant]
     Dosage: LEGALON ^COATED TABLETS 70 MG^ 40 TABLETS
     Route: 048
     Dates: start: 20130101, end: 20140307
  3. GEMCITABINE/GEMCITABINE HYDROCHLORIDE [Suspect]
     Indication: ADENOCARCINOMA PANCREAS
     Route: 042
     Dates: start: 20131220
  4. CREON [Concomitant]
     Dosage: CREON ^10000 U.PH.EUR MODIFIED RELEASE HARD CAPSULES^ 100 CAPSULES.
     Route: 048
     Dates: start: 20130101, end: 20140307
  5. LASIX [Concomitant]
     Indication: HYPERTENSION
     Dosage: LASIX ^25 MG TABLETS^ 30 TABLETS
     Route: 048
     Dates: start: 20130101, end: 20140215
  6. RAMIPRIL [Concomitant]
     Indication: HYPERTENSION
     Route: 048
     Dates: start: 20130101, end: 20140215

REACTIONS (1)
  - Pancytopenia [Recovering/Resolving]
